FAERS Safety Report 19602177 (Version 1)
Quarter: 2021Q3

REPORT INFORMATION
  Report Type: Spontaneous
  Country: FR (occurrence: FR)
  Receive Date: 20210723
  Receipt Date: 20210723
  Transmission Date: 20211014
  Serious: Yes (Hospitalization)
  Sender: FDA-Public Use
  Company Number: FR-NOVA LABORATORIES LIMITED-2114200

PATIENT
  Age: 7 Year
  Sex: Female
  Weight: 27.9 kg

DRUGS (19)
  1. PURINETHOL [Suspect]
     Active Substance: MERCAPTOPURINE
     Dates: end: 20170620
  2. VINCRISTINE [Suspect]
     Active Substance: VINCRISTINE
     Route: 042
     Dates: start: 20170606, end: 20170606
  3. PIPERACILLINE / TAZOBACTAM MYLAN [Concomitant]
     Active Substance: PIPERACILLIN SODIUM\TAZOBACTAM SODIUM
  4. METHOTREXATE. [Suspect]
     Active Substance: METHOTREXATE
     Route: 037
     Dates: start: 20170531, end: 20170531
  5. PARACETAMOL [Concomitant]
     Active Substance: ACETAMINOPHEN
  6. PENTACARINAT [Concomitant]
     Active Substance: PENTAMIDINE ISETHIONATE
  7. ESOMEPRAZOLE. [Concomitant]
     Active Substance: ESOMEPRAZOLE MAGNESIUM
  8. ERGOCALCIFEROL. [Concomitant]
     Active Substance: ERGOCALCIFEROL
  9. PURIXAN [Suspect]
     Active Substance: MERCAPTOPURINE
     Indication: ACUTE LYMPHOCYTIC LEUKAEMIA
     Dates: start: 20170530, end: 20170620
  10. DEXAMETHASONE. [Suspect]
     Active Substance: DEXAMETHASONE
     Route: 048
     Dates: start: 20170530, end: 20170603
  11. LACTULOSE. [Concomitant]
     Active Substance: LACTULOSE
  12. PEGASPARGASE [Suspect]
     Active Substance: PEGASPARGASE
     Route: 042
     Dates: start: 20170606, end: 20170608
  13. PURINETHOL [Suspect]
     Active Substance: MERCAPTOPURINE
     Dates: start: 20170609, end: 20170615
  14. AMITRIPTYLINE [Concomitant]
     Active Substance: AMITRIPTYLINE
  15. CALCIDOSE [CALCIUM CARBONATE] [Concomitant]
     Active Substance: CALCIUM CARBONATE
  16. METHOTREXATE. [Suspect]
     Active Substance: METHOTREXATE
     Route: 048
     Dates: start: 20170620, end: 20170620
  17. VINCRISTINE [Suspect]
     Active Substance: VINCRISTINE
     Route: 042
     Dates: start: 20170530, end: 20170530
  18. VITAMIN K1 (PHYTOMENADIONE) [Concomitant]
  19. FLIXOTIDE (FLUTICASONE PROPIONATE) [Concomitant]
     Active Substance: FLUTICASONE PROPIONATE

REACTIONS (2)
  - Jugular vein thrombosis [Recovered/Resolved]
  - Hypertriglyceridaemia [Unknown]
